FAERS Safety Report 22271429 (Version 1)
Quarter: 2023Q2

REPORT INFORMATION
  Report Type: Spontaneous
  Country: US (occurrence: None)
  Receive Date: 20230501
  Receipt Date: 20230501
  Transmission Date: 20230722
  Serious: Yes (Death)
  Sender: FDA-Public Use
  Company Number: US-ROCHE-3340773

PATIENT
  Sex: Female

DRUGS (2)
  1. PERJETA [Suspect]
     Active Substance: PERTUZUMAB
     Indication: Hepatobiliary cancer
     Route: 042
     Dates: start: 20200608, end: 20221021
  2. HERCEPTIN [Suspect]
     Active Substance: TRASTUZUMAB
     Indication: Hepatobiliary cancer
     Route: 042
     Dates: start: 20200608

REACTIONS (2)
  - Off label use [Unknown]
  - Death [Fatal]

NARRATIVE: CASE EVENT DATE: 20200608
